FAERS Safety Report 5725704-X (Version None)
Quarter: 2008Q2

REPORT INFORMATION
  Report Type: 
  Country: None (occurrence: None)
  Receive Date: 20080429
  Receipt Date: 20080417
  Transmission Date: 20081010
  Serious: Yes (Hospitalization)
  Sender: FDA-Public Use
  Company Number: US023136

PATIENT
  Age: 83 Year
  Sex: Male
  Weight: 66 kg

DRUGS (2)
  1. ARSENIC TRIOXIDE [Suspect]
     Indication: ACUTE MYELOID LEUKAEMIA
     Dosage: 17 MG DAYS 1-5 AND 8-12 OF EACH CYCLE QD INTRAVENOUS
     Route: 042
     Dates: start: 20080312, end: 20080323
  2. ARSENIC TRIOXIDE [Suspect]
     Indication: ACUTE MYELOID LEUKAEMIA
     Dosage: 17 MG QD DAYS 1-5 AND 8-12 OF EACH CYCLE INTRAVENOUS
     Route: 042
     Dates: start: 20080414, end: 20080414

REACTIONS (10)
  - BLOOD CULTURE POSITIVE [None]
  - FEBRILE NEUTROPENIA [None]
  - FLUID OVERLOAD [None]
  - OEDEMA PERIPHERAL [None]
  - PENILE OEDEMA [None]
  - PLEURAL EFFUSION [None]
  - PNEUMONIA [None]
  - PULMONARY OEDEMA [None]
  - RESPIRATORY DISTRESS [None]
  - SCROTAL OEDEMA [None]
